FAERS Safety Report 9736680 (Version 3)
Quarter: 2015Q3

REPORT INFORMATION
  Report Type: Spontaneous
  Country: US (occurrence: US)
  Receive Date: 20131206
  Receipt Date: 20150804
  Transmission Date: 20151125
  Serious: No
  Sender: FDA-Public Use
  Company Number: US-GILEAD-2009-0023203

PATIENT
  Age: 74 Year
  Sex: Female
  Weight: 49.89 kg

DRUGS (19)
  1. LASIX [Concomitant]
     Active Substance: FUROSEMIDE
  2. PULMICORT TURBUHALER [Concomitant]
     Active Substance: BUDESONIDE
  3. GLUCOPHAGE XR [Concomitant]
     Active Substance: METFORMIN HYDROCHLORIDE
  4. NYSTATIN. [Concomitant]
     Active Substance: NYSTATIN
  5. PHENOBARBITAL. [Concomitant]
     Active Substance: PHENOBARBITAL
  6. DILANTIN [Concomitant]
     Active Substance: PHENYTOIN
  7. NITROGLYCERIN. [Concomitant]
     Active Substance: NITROGLYCERIN
  8. ASPIRIN. [Concomitant]
     Active Substance: ASPIRIN
  9. OXYGEN. [Concomitant]
     Active Substance: OXYGEN
  10. TYLENOL W/CODEINE #3 [Concomitant]
  11. FOLIC ACID. [Concomitant]
     Active Substance: FOLIC ACID
  12. VENTAVIS [Concomitant]
     Active Substance: ILOPROST
  13. ENBREL [Concomitant]
     Active Substance: ETANERCEPT
  14. COUMADIN [Concomitant]
     Active Substance: WARFARIN SODIUM
  15. PERFOROMIST [Concomitant]
     Active Substance: FORMOTEROL FUMARATE DIHYDRATE
  16. PREDNISONE. [Concomitant]
     Active Substance: PREDNISONE
  17. LETAIRIS [Suspect]
     Active Substance: AMBRISENTAN
     Indication: PULMONARY ARTERIAL HYPERTENSION
     Route: 048
     Dates: start: 20090427
  18. MEGACE [Concomitant]
     Active Substance: MEGESTROL ACETATE
  19. METHOTREXATE [Concomitant]
     Active Substance: METHOTREXATE

REACTIONS (1)
  - Fatigue [Unknown]
